FAERS Safety Report 4883456-X (Version None)
Quarter: 2006Q1

REPORT INFORMATION
  Report Type: 
  Country: None (occurrence: None)
  Receive Date: 20060118
  Receipt Date: 20050929
  Transmission Date: 20060701
  Serious: Yes (Hospitalization)
  Sender: FDA-Public Use
  Company Number: US-MERCK-0510USA00204

PATIENT
  Age: 62 Year
  Sex: Male
  Weight: 100 kg

DRUGS (4)
  1. VIOXX [Suspect]
     Indication: ARTHRITIS
     Route: 048
     Dates: start: 20020524, end: 20030723
  2. VIOXX [Suspect]
     Indication: PAIN
     Route: 048
     Dates: start: 20020524, end: 20030723
  3. [THERAPY UNSPECIFIED] [Concomitant]
     Route: 065
  4. TYLENOL (CAPLET) [Concomitant]
     Route: 065

REACTIONS (14)
  - ABDOMINAL HERNIA [None]
  - ANGINA UNSTABLE [None]
  - ARTHROPATHY [None]
  - BRONCHITIS [None]
  - BUNDLE BRANCH BLOCK RIGHT [None]
  - CORONARY ARTERY DISEASE [None]
  - DIABETES MELLITUS [None]
  - EYE DISORDER [None]
  - HYPERCHOLESTEROLAEMIA [None]
  - HYPERTENSION [None]
  - LOBAR PNEUMONIA [None]
  - MYOCARDIAL INFARCTION [None]
  - RIB FRACTURE [None]
  - SINUSITIS [None]
